FAERS Safety Report 21605821 (Version 1)
Quarter: 2022Q4

REPORT INFORMATION
  Report Type: Report from Study
  Country: CN (occurrence: CN)
  Receive Date: 20221116
  Receipt Date: 20221116
  Transmission Date: 20230113
  Serious: Yes (Other)
  Sender: FDA-Public Use
  Company Number: CN-SUN PHARMACEUTICAL INDUSTRIES LTD-2022R1-363705

PATIENT
  Sex: Male

DRUGS (2)
  1. PREDNISONE [Suspect]
     Active Substance: PREDNISONE
     Indication: Haemophilia
     Dosage: 2 MILLIGRAM PER KILOGRAM, DAILY
     Route: 065
  2. RITUXIMAB [Suspect]
     Active Substance: RITUXIMAB
     Indication: Haemophilia
     Dosage: 375 MILLIGRAM PER SQ. METER, 4 TIMES PER WEEK
     Route: 065

REACTIONS (3)
  - Nephrotic syndrome [Unknown]
  - Treatment failure [Unknown]
  - Hypersensitivity [Unknown]
